FAERS Safety Report 4384407-7 (Version None)
Quarter: 2004Q2

REPORT INFORMATION
  Report Type: 
  Country: None (occurrence: None)
  Receive Date: 20040621
  Receipt Date: 20040607
  Transmission Date: 20050107
  Serious: Yes (Other)
  Sender: FDA-Public Use
  Company Number: 2004218093GB

PATIENT
  Age: 23 Year
  Sex: Female

DRUGS (1)
  1. DALACIN T(CLINDAMYCIN) SOLUTION [Suspect]
     Indication: ACNE
     Dosage: QD, TOPICAL
     Route: 061
     Dates: start: 20040201, end: 20040401

REACTIONS (2)
  - COMEDONE [None]
  - CONDITION AGGRAVATED [None]
